FAERS Safety Report 4736950-6 (Version None)
Quarter: 2005Q3

REPORT INFORMATION
  Report Type: 
  Country: None (occurrence: None)
  Receive Date: 20050808
  Receipt Date: 20050711
  Transmission Date: 20060218
  Serious: Yes (Hospitalization)
  Sender: FDA-Public Use
  Company Number: US-ROCHE-410481

PATIENT
  Age: 45 Year
  Sex: Female
  Weight: 119.7 kg

DRUGS (13)
  1. PEG-INTERFERON ALFA 2A (RO 25-8310) [Suspect]
     Route: 058
     Dates: start: 20050318, end: 20050405
  2. PEG-INTERFERON ALFA 2A (RO 25-8310) [Suspect]
     Route: 058
     Dates: start: 20050422
  3. RIBAVIRIN [Suspect]
     Route: 048
     Dates: start: 20050318, end: 20050408
  4. RIBAVIRIN [Suspect]
     Route: 048
     Dates: start: 20050418
  5. LORATADINE [Concomitant]
     Indication: ASTHMA
     Route: 048
     Dates: start: 20030615
  6. SINGULAIR [Concomitant]
     Indication: FOOD ALLERGY
     Route: 048
     Dates: start: 20000615
  7. PERCOCET [Concomitant]
     Dates: start: 20041015
  8. IBUPROFEN [Concomitant]
     Indication: ARTHRITIS
     Dates: start: 20030815
  9. TIZANIDINE HCL [Concomitant]
     Route: 048
     Dates: start: 20030815
  10. ZINC [Concomitant]
     Route: 048
     Dates: start: 20040715
  11. PREVACID [Concomitant]
     Route: 048
     Dates: start: 20050309
  12. PHENERGAN [Concomitant]
     Indication: NAUSEA
     Route: 048
     Dates: start: 20050404
  13. STRESSTABS WITH IRON [Concomitant]
     Dates: start: 20040615

REACTIONS (1)
  - FOOD POISONING [None]
